FAERS Safety Report 9679929 (Version 2)
Quarter: 2014Q1

REPORT INFORMATION
  Report Type: Report from Study
  Country: BR (occurrence: BR)
  Receive Date: 20131110
  Receipt Date: 20140205
  Transmission Date: 20141002
  Serious: Yes (Other)
  Sender: FDA-Public Use
  Company Number: BR-US-EMD SERONO, INC.-7247450

PATIENT
  Age: 43 Year
  Sex: Male

DRUGS (4)
  1. REBIF [Suspect]
     Indication: MULTIPLE SCLEROSIS
     Dates: start: 20030901
  2. POLYVITAMINICO [Concomitant]
     Indication: PRODUCT USED FOR UNKNOWN INDICATION
  3. OSCAL D                            /01746701/ [Concomitant]
     Indication: PRODUCT USED FOR UNKNOWN INDICATION
  4. BREWER^S YEAST [Concomitant]
     Indication: PRODUCT USED FOR UNKNOWN INDICATION

REACTIONS (3)
  - Shock [Unknown]
  - Cerebral ischaemia [Recovering/Resolving]
  - Neurological infection [Recovering/Resolving]
